FAERS Safety Report 4893770-X (Version None)
Quarter: 2006Q1

REPORT INFORMATION
  Report Type: 
  Country: None (occurrence: None)
  Receive Date: 20060124
  Receipt Date: 20060111
  Transmission Date: 20060701
  Serious: Yes (Hospitalization, Other)
  Sender: FDA-Public Use
  Company Number: 2006AL000042

PATIENT
  Age: 76 Year
  Sex: Male

DRUGS (3)
  1. DICLOFENAC [Suspect]
     Indication: RHEUMATOID ARTHRITIS
     Dosage: 50 MG; QD; PO
     Route: 048
  2. ALFACALCIDOL [Concomitant]
  3. BUCILLAMINE [Concomitant]

REACTIONS (17)
  - ANTINUCLEAR ANTIBODY INCREASED [None]
  - BILIARY DILATATION [None]
  - BLOOD ALBUMIN DECREASED [None]
  - BLOOD ALKALINE PHOSPHATASE INCREASED [None]
  - BLOOD IMMUNOGLOBULIN A INCREASED [None]
  - BLOOD PARATHYROID HORMONE DECREASED [None]
  - BLOOD PARATHYROID HORMONE INCREASED [None]
  - BONE SCAN ABNORMAL [None]
  - CONDITION AGGRAVATED [None]
  - DECREASED ACTIVITY [None]
  - DIZZINESS [None]
  - FATIGUE [None]
  - HYPERCALCAEMIA [None]
  - LETHARGY [None]
  - RENAL FAILURE [None]
  - RHEUMATOID ARTHRITIS [None]
  - THIRST [None]
